FAERS Safety Report 13725559 (Version 1)
Quarter: 2017Q3

REPORT INFORMATION
  Report Type: Spontaneous
  Country: EG (occurrence: EG)
  Receive Date: 20170707
  Receipt Date: 20170707
  Transmission Date: 20171127
  Serious: Yes (Death)
  Sender: FDA-Public Use
  Company Number: EG-SA-2017SA122432

PATIENT
  Age: 9 Year
  Sex: Female
  Weight: 26 kg

DRUGS (1)
  1. CEREZYME [Suspect]
     Active Substance: IMIGLUCERASE
     Indication: GAUCHER^S DISEASE TYPE III
     Dosage: DOSE:2.30 UNIT(S)/KILOGRAM BODYWEIGHT
     Route: 041
     Dates: start: 201609, end: 20170628

REACTIONS (2)
  - Pneumonia aspiration [Fatal]
  - Status epilepticus [Fatal]
